FAERS Safety Report 26081520 (Version 1)
Quarter: 2025Q4

REPORT INFORMATION
  Report Type: Report from Study
  Country: US (occurrence: US)
  Receive Date: 20251124
  Receipt Date: 20251124
  Transmission Date: 20260117
  Serious: Yes (Hospitalization)
  Sender: HELSINN HEALTHCARE
  Company Number: US-HBP-2025US032573

PATIENT
  Sex: Female

DRUGS (1)
  1. VALCHLOR [Suspect]
     Active Substance: MECHLORETHAMINE
     Indication: Cutaneous T-cell lymphoma
     Dosage: UNK, QD
     Route: 061

REACTIONS (2)
  - Pain [Unknown]
  - Skin lesion [Not Recovered/Not Resolved]
